FAERS Safety Report 25581565 (Version 1)
Quarter: 2025Q3

REPORT INFORMATION
  Report Type: Spontaneous
  Country: JP (occurrence: JP)
  Receive Date: 20250719
  Receipt Date: 20250719
  Transmission Date: 20251020
  Serious: Yes (Death)
  Sender: MEDLEY PHARMACEUTICALS LIMITED
  Company Number: JP-MEDLEY-000026

PATIENT
  Sex: Female
  Weight: 41 kg

DRUGS (3)
  1. MIRTAZAPINE [Suspect]
     Active Substance: MIRTAZAPINE
     Indication: Epilepsy
     Route: 065
  2. LEVETIRACETAM [Concomitant]
     Active Substance: LEVETIRACETAM
     Indication: Epilepsy
     Route: 065
  3. LACOSAMIDE [Suspect]
     Active Substance: LACOSAMIDE
     Indication: Epilepsy
     Route: 065

REACTIONS (5)
  - Toxicity to various agents [Fatal]
  - Anticonvulsant drug level above therapeutic [Fatal]
  - Self-medication [Fatal]
  - Intentional overdose [Fatal]
  - Poisoning deliberate [Fatal]
